FAERS Safety Report 9682504 (Version 2)
Quarter: 2013Q4

REPORT INFORMATION
  Report Type: Spontaneous
  Country: US (occurrence: US)
  Receive Date: 20131112
  Receipt Date: 20131204
  Transmission Date: 20140711
  Serious: Yes (Other)
  Sender: FDA-Public Use
  Company Number: US-JNJFOC-20131101805

PATIENT
  Age: 82 Year
  Sex: Female

DRUGS (1)
  1. XARELTO [Suspect]
     Indication: DEEP VEIN THROMBOSIS
     Route: 048

REACTIONS (4)
  - Gastrointestinal haemorrhage [Unknown]
  - Gastrointestinal carcinoma [Unknown]
  - Deep vein thrombosis [Unknown]
  - Incorrect dose administered [Unknown]
